FAERS Safety Report 16022049 (Version 6)
Quarter: 2021Q4

REPORT INFORMATION
  Report Type: Spontaneous
  Country: CA (occurrence: CA)
  Receive Date: 20190301
  Receipt Date: 20211110
  Transmission Date: 20220303
  Serious: Yes (Hospitalization, Other)
  Sender: FDA-Public Use
  Company Number: None

PATIENT
  Age: 71 Year
  Sex: Female
  Weight: 68.4 kg

DRUGS (25)
  1. AMLODIPINE [Suspect]
     Active Substance: AMLODIPINE BESYLATE
     Indication: Blood pressure abnormal
     Dosage: 2.5 MG, TWO TIMES A DAY
     Route: 065
  2. AMLODIPINE [Suspect]
     Active Substance: AMLODIPINE BESYLATE
     Indication: Hypertension
  3. CITALOPRAM [Suspect]
     Active Substance: CITALOPRAM HYDROBROMIDE
     Indication: Product used for unknown indication
     Dosage: UNK
     Route: 065
  4. ARIPIPRAZOLE [Suspect]
     Active Substance: ARIPIPRAZOLE
     Indication: Product used for unknown indication
     Dosage: UNK
     Route: 065
  5. ABILIFY [Suspect]
     Active Substance: ARIPIPRAZOLE
     Indication: Product used for unknown indication
     Dosage: UNK
     Route: 065
  6. ABILIFY MAINTENA [Suspect]
     Active Substance: ARIPIPRAZOLE
     Indication: Product used for unknown indication
     Dosage: UNK
     Route: 065
  7. BUPROPION [Suspect]
     Active Substance: BUPROPION
     Indication: Product used for unknown indication
     Dosage: UNK
     Route: 065
  8. FESOTERODINE [Suspect]
     Active Substance: FESOTERODINE
     Indication: Hypertonic bladder
     Dosage: 4 MILLIGRAM, ONCE A DAY
     Route: 065
  9. FUROSEMIDE [Suspect]
     Active Substance: FUROSEMIDE
     Indication: Oedema peripheral
     Dosage: 20 MILLIGRAM, ONCE A DAY (20 MG, QD)
     Route: 065
  10. IBUPROFEN [Suspect]
     Active Substance: IBUPROFEN
     Indication: Product used for unknown indication
     Dosage: UNK
     Route: 065
  11. SPIRONOLACTONE [Suspect]
     Active Substance: SPIRONOLACTONE
     Indication: Oedema peripheral
     Dosage: 25 MILLIGRAM, ONCE A DAY (25 MG, QD)
     Route: 065
  12. TOVIAZ [Suspect]
     Active Substance: FESOTERODINE FUMARATE
     Indication: Hypertonic bladder
     Dosage: 4 MILLIGRAM, ONCE A DAY (4 MG, QD)
     Route: 065
  13. TOVIAZ [Suspect]
     Active Substance: FESOTERODINE FUMARATE
     Dosage: 4 MILLIGRAM, 1 EVERY 1 HOUR
     Route: 065
  14. WELLBUTRIN [Suspect]
     Active Substance: BUPROPION HYDROCHLORIDE
     Indication: Product used for unknown indication
     Dosage: UNK
     Route: 065
  15. AMLODIPINE [Concomitant]
     Active Substance: AMLODIPINE BESYLATE
     Indication: Product used for unknown indication
     Dosage: UNK
     Route: 065
  16. ANETHOLTRITHION [Concomitant]
     Active Substance: ANETHOLTRITHION
     Indication: Dry mouth
     Dosage: 25 MILLIGRAM, 3 TIMES A DAY
     Route: 065
  17. CLOPIDOGREL [Concomitant]
     Active Substance: CLOPIDOGREL BISULFATE
     Indication: Product used for unknown indication
     Dosage: UNK
     Route: 065
  18. FENOFIBRATE [Concomitant]
     Active Substance: FENOFIBRATE
     Indication: Product used for unknown indication
     Dosage: UNK
     Route: 065
  19. HYDROXYZINE [Concomitant]
     Active Substance: HYDROXYZINE HYDROCHLORIDE
     Indication: Product used for unknown indication
     Dosage: UNK
     Route: 065
  20. LEVOTHYROXINE [Concomitant]
     Active Substance: LEVOTHYROXINE
     Indication: Product used for unknown indication
     Dosage: UNK
     Route: 065
  21. METFORMIN [Concomitant]
     Active Substance: METFORMIN HYDROCHLORIDE
     Indication: Product used for unknown indication
     Dosage: UNK
     Route: 065
  22. MONTELUKAST [Concomitant]
     Active Substance: MONTELUKAST SODIUM
     Indication: Product used for unknown indication
     Dosage: UNK
     Route: 065
  23. POTASSIUM CITRATE [Concomitant]
     Active Substance: POTASSIUM CITRATE
     Indication: Product used for unknown indication
     Dosage: UNK
     Route: 065
  24. RABEPRAZOLE [Concomitant]
     Active Substance: RABEPRAZOLE
     Indication: Product used for unknown indication
     Dosage: UNK
     Route: 065
  25. ANETHOLTRITHION [Concomitant]
     Active Substance: ANETHOLTRITHION
     Indication: Product used for unknown indication
     Dosage: UNK
     Route: 065

REACTIONS (9)
  - Balance disorder [Recovered/Resolved]
  - Dry mouth [Recovered/Resolved]
  - Fall [Recovered/Resolved]
  - Gait disturbance [Recovered/Resolved]
  - Hypertonic bladder [Recovered/Resolved]
  - Multiple fractures [Recovered/Resolved]
  - Oedema peripheral [Recovered/Resolved]
  - Pain [Recovered/Resolved]
  - Urinary incontinence [Recovered/Resolved]
